FAERS Safety Report 24231171 (Version 1)
Quarter: 2024Q3

REPORT INFORMATION
  Report Type: Spontaneous
  Country: CA (occurrence: CA)
  Receive Date: 20240821
  Receipt Date: 20240821
  Transmission Date: 20241017
  Serious: Yes (Death)
  Sender: ABBVIE
  Company Number: CA-ABBVIE-5887567

PATIENT
  Age: 66 Year
  Sex: Male

DRUGS (2)
  1. SKYRIZI [Suspect]
     Active Substance: RISANKIZUMAB-RZAA
     Indication: Psoriasis
     Route: 058
  2. SILIQ [Suspect]
     Active Substance: BRODALUMAB
     Indication: Psoriasis
     Route: 058

REACTIONS (5)
  - Multiple organ dysfunction syndrome [Fatal]
  - Urinary tract candidiasis [Fatal]
  - Respiratory tract infection fungal [Fatal]
  - Vascular device infection [Fatal]
  - Candida infection [Fatal]
